FAERS Safety Report 8146835-3 (Version None)
Quarter: 2012Q1

REPORT INFORMATION
  Report Type: 
  Country: None (occurrence: None)
  Receive Date: 20120217
  Receipt Date: 20110808
  Transmission Date: 20120608
  Serious: No
  Sender: FDA-Public Use
  Company Number: US-ABBOTT-11P-163-0844597-00

PATIENT
  Sex: Male
  Weight: 97.61 kg

DRUGS (4)
  1. SIMCOR [Suspect]
     Indication: PRODUCT USED FOR UNKNOWN INDICATION
     Dosage: WITH EVENING MEAL
     Route: 048
     Dates: start: 20090101
  2. IBUPROFEN (ADVIL) [Concomitant]
     Indication: PRODUCT USED FOR UNKNOWN INDICATION
     Dosage: PRIOR TO EVENING MEAL
     Route: 048
  3. CIALIS [Concomitant]
     Indication: PRODUCT USED FOR UNKNOWN INDICATION
  4. ANDROGEL [Concomitant]
     Indication: PRODUCT USED FOR UNKNOWN INDICATION

REACTIONS (3)
  - PARAESTHESIA [None]
  - FLUSHING [None]
  - FEELING HOT [None]
